FAERS Safety Report 8257180-X (Version None)
Quarter: 2012Q2

REPORT INFORMATION
  Report Type: 
  Country: None (occurrence: None)
  Receive Date: 20120403
  Receipt Date: 20120327
  Transmission Date: 20120825
  Serious: Yes (Disabling, Other)
  Sender: FDA-Public Use
  Company Number: PHHY2010JP33348

PATIENT
  Age: 73 Year
  Sex: Male
  Weight: 59 kg

DRUGS (5)
  1. TAMIFLU [Concomitant]
  2. SERENAL [Concomitant]
  3. LANSOPRAZOLE [Concomitant]
  4. OXATOMIDE [Concomitant]
  5. VOLTAREN [Suspect]
     Indication: BACK PAIN
     Dosage: 1 DF, UNK
     Route: 054

REACTIONS (14)
  - DYSLALIA [None]
  - RASH GENERALISED [None]
  - STEVENS-JOHNSON SYNDROME [None]
  - BACK PAIN [None]
  - NUTRITIONAL CONDITION ABNORMAL [None]
  - GENERALISED ERYTHEMA [None]
  - ORAL PAIN [None]
  - APHAGIA [None]
  - DEHYDRATION [None]
  - ORAL MUCOSA EROSION [None]
  - GENITAL EROSION [None]
  - PYREXIA [None]
  - GENITAL PAIN [None]
  - BRAIN STEM INFARCTION [None]
